FAERS Safety Report 15883832 (Version 1)
Quarter: 2019Q1

REPORT INFORMATION
  Report Type: Spontaneous
  Country: GB (occurrence: GB)
  Receive Date: 20190129
  Receipt Date: 20190129
  Transmission Date: 20190417
  Serious: Yes (Other)
  Sender: FDA-Public Use
  Company Number: GB-PERRIGO-19GB001206

PATIENT
  Age: 4 Year
  Sex: Male
  Weight: 19.7 kg

DRUGS (2)
  1. PARACETAMOL [Suspect]
     Active Substance: ACETAMINOPHEN
     Indication: ALLERGY TEST
     Dosage: 12 MG, SINGLE
     Route: 048
     Dates: start: 20181120, end: 20181120
  2. PARACETAMOL [Suspect]
     Active Substance: ACETAMINOPHEN
     Indication: PYREXIA
     Dosage: 1 DF, SINGLE
     Route: 048
     Dates: start: 20180122, end: 20180122

REACTIONS (3)
  - Urticaria [Recovered/Resolved]
  - Hypersensitivity [Recovered/Resolved]
  - Allergic reaction to excipient [Recovered/Resolved]

NARRATIVE: CASE EVENT DATE: 20181120
